FAERS Safety Report 8472772-0 (Version None)
Quarter: 2012Q2

REPORT INFORMATION
  Report Type: 
  Country: None (occurrence: None)
  Receive Date: 20120622
  Receipt Date: 20120622
  Transmission Date: 20120825
  Serious: Yes (Hospitalization)
  Sender: FDA-Public Use
  Company Number: None

PATIENT
  Sex: Male
  Weight: 78.3 kg

DRUGS (4)
  1. YERVOY 3MG/KG BMS [Suspect]
     Indication: INVESTIGATION
     Dosage: 3MG/KG Q3WEEKS IV
     Route: 042
     Dates: start: 20120601, end: 20120601
  2. YERVOY 3MG/KG BMS [Suspect]
     Indication: METASTATIC MALIGNANT MELANOMA
     Dosage: 3MG/KG Q3WEEKS IV
     Route: 042
     Dates: start: 20120601, end: 20120601
  3. PEGINTERFERON ALFA-2B [Suspect]
     Indication: METASTATIC MALIGNANT MELANOMA
     Dosage: 3MCG/KG WEEKLY SQ
     Route: 058
     Dates: start: 20120601, end: 20120601
  4. PEGINTERFERON ALFA-2B [Suspect]
     Indication: INVESTIGATION
     Dosage: 3MCG/KG WEEKLY SQ
     Route: 058
     Dates: start: 20120601, end: 20120601

REACTIONS (6)
  - HYPONATRAEMIA [None]
  - CONSTIPATION [None]
  - NAUSEA [None]
  - DEHYDRATION [None]
  - VOMITING [None]
  - ANAEMIA [None]
